FAERS Safety Report 11821149 (Version 1)
Quarter: 2015Q4

REPORT INFORMATION
  Report Type: Spontaneous
  Country: US (occurrence: US)
  Receive Date: 20151210
  Receipt Date: 20151210
  Transmission Date: 20160305
  Serious: No
  Sender: FDA-Public Use
  Company Number: US-JNJFOC-20150805854

PATIENT
  Sex: Female

DRUGS (17)
  1. FENTANYL. [Concomitant]
     Active Substance: FENTANYL
  2. ROPINIROLE. [Concomitant]
     Active Substance: ROPINIROLE
  3. LIDOCAINE PATCH [Concomitant]
     Active Substance: LIDOCAINE
  4. VITAMIN D [Concomitant]
     Active Substance: CHOLECALCIFEROL
  5. OXYBUTIN [Concomitant]
     Active Substance: OXYBUTYNIN
  6. ALENDRONATE [Concomitant]
     Active Substance: ALENDRONATE SODIUM
  7. METFORMIN [Concomitant]
     Active Substance: METFORMIN HYDROCHLORIDE
  8. LEVOTHYROXINE. [Concomitant]
     Active Substance: LEVOTHYROXINE
  9. ZOLPIDEM [Concomitant]
     Active Substance: ZOLPIDEM\ZOLPIDEM TARTRATE
  10. VENLAFAXINE [Concomitant]
     Active Substance: VENLAFAXINE HYDROCHLORIDE
  11. NEXIUM [Concomitant]
     Active Substance: ESOMEPRAZOLE MAGNESIUM
  12. MONTELUKAST [Concomitant]
     Active Substance: MONTELUKAST SODIUM
  13. IMBRUVICA [Suspect]
     Active Substance: IBRUTINIB
     Indication: WALDENSTROM^S MACROGLOBULINAEMIA
     Route: 048
     Dates: start: 20150604
  14. LISINOPRIL. [Concomitant]
     Active Substance: LISINOPRIL
  15. VITAMIN B COMPLEX [Concomitant]
     Active Substance: CYANOCOBALAMIN\DEXPANTHENOL\NIACINAMIDE\PYRIDOXINE HYDROCHLORIDE\RIBOFLAVIN 5^-PHOSPHATE SODIUM\THIAMINE HYDROCHLORIDE\VITAMIN B COMPLEX
  16. ADVAIR HFA [Concomitant]
     Active Substance: FLUTICASONE PROPIONATE\SALMETEROL XINAFOATE
  17. MAGNESIUM [Concomitant]
     Active Substance: MAGNESIUM

REACTIONS (4)
  - Abdominal distension [Unknown]
  - Headache [Unknown]
  - Nausea [Unknown]
  - Rash [Unknown]

NARRATIVE: CASE EVENT DATE: 2015
